FAERS Safety Report 13413726 (Version 4)
Quarter: 2023Q4

REPORT INFORMATION
  Report Type: Spontaneous
  Country: US (occurrence: US)
  Receive Date: 20170406
  Receipt Date: 20231016
  Transmission Date: 20240110
  Serious: Yes (Other)
  Sender: FDA-Public Use
  Company Number: US-JNJFOC-20170313895

PATIENT
  Age: 19 Year
  Sex: Male
  Weight: 83.99 kg

DRUGS (14)
  1. RISPERDAL [Suspect]
     Active Substance: RISPERIDONE
     Indication: Schizophrenia
     Dosage: 1 MG, 2 MG, 3 MG AND 4 MG
     Route: 048
     Dates: start: 20100227, end: 20130411
  2. RISPERDAL [Suspect]
     Active Substance: RISPERIDONE
     Indication: Autism spectrum disorder
     Route: 048
     Dates: start: 20130418, end: 20140131
  3. RISPERDAL [Suspect]
     Active Substance: RISPERIDONE
     Indication: Obsessive-compulsive disorder
  4. RISPERIDONE [Suspect]
     Active Substance: RISPERIDONE
     Indication: Schizophrenia
     Dosage: 1 MG, 2 MG, 3 MG AND 4 MG
     Route: 048
     Dates: start: 20111122, end: 20130430
  5. RISPERIDONE [Suspect]
     Active Substance: RISPERIDONE
     Indication: Autism spectrum disorder
     Route: 048
     Dates: start: 2013, end: 20130531
  6. RISPERIDONE [Suspect]
     Active Substance: RISPERIDONE
     Indication: Obsessive-compulsive disorder
  7. RISPERDAL M-TAB [Suspect]
     Active Substance: RISPERIDONE
     Indication: Schizophrenia
     Dosage: 1 MG, 2 MG, 3 MG AND 4 MG
     Route: 048
     Dates: start: 20130227
  8. RISPERDAL M-TAB [Suspect]
     Active Substance: RISPERIDONE
     Indication: Autism spectrum disorder
  9. RISPERDAL M-TAB [Suspect]
     Active Substance: RISPERIDONE
     Indication: Obsessive-compulsive disorder
  10. RISPERDAL CONSTA [Suspect]
     Active Substance: RISPERIDONE
     Indication: Schizophrenia
     Dosage: 25 MG, 37.5 MG AND 50 MG
     Route: 030
     Dates: start: 20120214, end: 20130416
  11. RISPERDAL CONSTA [Suspect]
     Active Substance: RISPERIDONE
     Indication: Autism spectrum disorder
  12. RISPERDAL CONSTA [Suspect]
     Active Substance: RISPERIDONE
     Indication: Obsessive-compulsive disorder
  13. RISPERDAL CONSTA [Suspect]
     Active Substance: RISPERIDONE
  14. RISPERIDONE [Suspect]
     Active Substance: RISPERIDONE
     Indication: Product used for unknown indication
     Dosage: 1 MG, 2 MG, 3 MG AND 4 MG
     Route: 048

REACTIONS (4)
  - Obesity [Recovering/Resolving]
  - Blood prolactin increased [Unknown]
  - Gynaecomastia [Unknown]
  - Emotional distress [Unknown]

NARRATIVE: CASE EVENT DATE: 20130429
